FAERS Safety Report 15928096 (Version 2)
Quarter: 2019Q2

REPORT INFORMATION
  Report Type: Report from Study
  Country: None (occurrence: BR)
  Receive Date: 20190205
  Receipt Date: 20190409
  Transmission Date: 20190711
  Serious: Yes (Other)
  Sender: FDA-Public Use
  Company Number: BR-ABBVIE-19K-020-2647869-00

PATIENT
  Sex: Female

DRUGS (2)
  1. CHLOROQUINE. [Concomitant]
     Active Substance: CHLOROQUINE
     Indication: PRODUCT USED FOR UNKNOWN INDICATION
  2. HUMIRA [Suspect]
     Active Substance: ADALIMUMAB
     Indication: RHEUMATOID ARTHRITIS
     Route: 058
     Dates: start: 20181218

REACTIONS (5)
  - Respiratory disorder [Unknown]
  - Pruritus generalised [Unknown]
  - Visual impairment [Unknown]
  - Hyperhidrosis [Unknown]
  - Vision blurred [Unknown]
